FAERS Safety Report 9355639 (Version 1)
Quarter: 2013Q2

REPORT INFORMATION
  Report Type: Report from Study
  Country: US (occurrence: US)
  Receive Date: 20130619
  Receipt Date: 20130619
  Transmission Date: 20140414
  Serious: Yes (Other)
  Sender: FDA-Public Use
  Company Number: US-BRISTOL-MYERS SQUIBB COMPANY-19005701

PATIENT
  Age: 60 Year
  Sex: Male

DRUGS (1)
  1. ORENCIA [Suspect]
     Dosage: INTERR AND RESTARTED AND AGAIN STOPPED?RECENT DOSE 23MAY13
     Route: 042

REACTIONS (3)
  - Lung disorder [Unknown]
  - Haemoptysis [Unknown]
  - Pyrexia [Unknown]
